FAERS Safety Report 8544564-5 (Version None)
Quarter: 2012Q3

REPORT INFORMATION
  Report Type: 
  Country: None (occurrence: None)
  Receive Date: 20120727
  Receipt Date: 20120718
  Transmission Date: 20120928
  Serious: Yes (Other)
  Sender: FDA-Public Use
  Company Number: US-ABBOTT-12P-163-0958494-00

PATIENT
  Sex: Male
  Weight: 85.806 kg

DRUGS (2)
  1. HUMIRA [Suspect]
     Indication: PSORIATIC ARTHROPATHY
     Dates: start: 20090101, end: 20120601
  2. HUMIRA [Suspect]
     Indication: PSORIASIS

REACTIONS (7)
  - GAIT DISTURBANCE [None]
  - NUCLEAR MAGNETIC RESONANCE IMAGING BRAIN ABNORMAL [None]
  - PARAESTHESIA [None]
  - HYPOAESTHESIA [None]
  - ASTHENIA [None]
  - NUCLEAR MAGNETIC RESONANCE IMAGING SPINAL CORD ABNORMAL [None]
  - MULTIPLE SCLEROSIS [None]
